FAERS Safety Report 5263858-2 (Version None)
Quarter: 2007Q1

REPORT INFORMATION
  Report Type: 
  Country: None (occurrence: None)
  Receive Date: 20061213
  Receipt Date: 20040325
  Transmission Date: 20070707
  Serious: Yes (Other)
  Sender: FDA-Public Use
  Company Number: 2004UW05881

PATIENT
  Age: 79 Year
  Sex: Male

DRUGS (1)
  1. IRESSA [Suspect]
     Dosage: A FEW MONTHS

REACTIONS (2)
  - LIVER FUNCTION TEST ABNORMAL [None]
  - RENAL FUNCTION TEST ABNORMAL [None]
